FAERS Safety Report 4530225-6 (Version None)
Quarter: 2004Q4

REPORT INFORMATION
  Report Type: 
  Country: None (occurrence: None)
  Receive Date: 20041215
  Receipt Date: 20041027
  Transmission Date: 20050328
  Serious: Yes (Hospitalization, Other)
  Sender: FDA-Public Use
  Company Number: 206963

PATIENT
  Age: 57 Year
  Sex: Female
  Weight: 90.7194 kg

DRUGS (25)
  1. AVONEX [Suspect]
     Indication: MULTIPLE SCLEROSIS
     Dosage: SEE IMAGE
     Dates: start: 20040601, end: 20040719
  2. AVONEX [Suspect]
     Indication: MULTIPLE SCLEROSIS
     Dosage: SEE IMAGE
     Dates: start: 20040726, end: 20040802
  3. AVONEX [Suspect]
     Indication: MULTIPLE SCLEROSIS
     Dosage: SEE IMAGE
     Dates: start: 20040809, end: 20040916
  4. AVONEX [Suspect]
     Indication: MULTIPLE SCLEROSIS
     Dosage: SEE IMAGE
     Dates: start: 20040823
  5. FOLIC ACID [Concomitant]
  6. MOBIC [Concomitant]
  7. MIACALCIN [Concomitant]
  8. ACTONEL [Concomitant]
  9. MULTIVITAMIN [Concomitant]
  10. OS-CAL [Concomitant]
  11. METHOTREXATE [Concomitant]
  12. PROVIGIL [Concomitant]
  13. ACTIVELLE [Concomitant]
  14. NEXUM [Concomitant]
  15. NIFEDIPINE [Concomitant]
  16. LAMICTAL [Concomitant]
  17. LEXAPRO [Concomitant]
  18. AMBIEN [Concomitant]
  19. TRAMADOL HCL [Concomitant]
  20. KLONOPIN [Concomitant]
  21. REGLAN [Concomitant]
  22. PHENERGAN [Concomitant]
  23. ADVAIR DISKUS 100/50 [Concomitant]
  24. BLOCADREN [Concomitant]
  25. PREDNISONE [Concomitant]

REACTIONS (8)
  - BIPOLAR DISORDER [None]
  - GASTROINTESTINAL DISORDER [None]
  - HEART RATE INCREASED [None]
  - HYPERTENSION [None]
  - INFLUENZA LIKE ILLNESS [None]
  - OSTEOPOROSIS [None]
  - SLEEP APNOEA SYNDROME [None]
  - VIRAL INFECTION [None]
